FAERS Safety Report 24826033 (Version 1)
Quarter: 2025Q1

REPORT INFORMATION
  Report Type: Spontaneous
  Country: US (occurrence: US)
  Receive Date: 20250109
  Receipt Date: 20250109
  Transmission Date: 20250409
  Serious: No
  Sender: TEVA
  Company Number: US-TEVA-VS-3278606

PATIENT
  Sex: Male

DRUGS (1)
  1. QVAR REDIHALER [Suspect]
     Active Substance: BECLOMETHASONE DIPROPIONATE
     Indication: Product used for unknown indication
     Dosage: 80MCG/DOSE, 80 MCG 2 PUFFS
     Route: 055

REACTIONS (4)
  - Ageusia [Unknown]
  - Device defective [Unknown]
  - Device leakage [Unknown]
  - Device malfunction [Unknown]
